FAERS Safety Report 10996510 (Version 3)
Quarter: 2015Q4

REPORT INFORMATION
  Report Type: Spontaneous
  Country: GB (occurrence: GB)
  Receive Date: 20150408
  Receipt Date: 20151201
  Transmission Date: 20160304
  Serious: Yes (Other)
  Sender: FDA-Public Use
  Company Number: GB-ACCORD-029799

PATIENT
  Age: 59 Year
  Sex: Female
  Weight: 85 kg

DRUGS (13)
  1. METFOREM [Concomitant]
     Active Substance: METFORMIN HYDROCHLORIDE
     Dosage: STILL ON THIS
     Dates: start: 20140321
  2. ACETYLSALICYLIC ACID [Concomitant]
     Active Substance: ASPIRIN
     Dosage: STILL ON THIS
     Dates: start: 20001127
  3. TERBUTALINE [Concomitant]
     Active Substance: TERBUTALINE
     Dosage: STILL ON THIS
     Dates: start: 20100512
  4. TRAMADOL. [Concomitant]
     Active Substance: TRAMADOL
     Dosage: STILL ON THIS
     Dates: start: 20130122
  5. HYDROXYZINE [Interacting]
     Active Substance: HYDROXYZINE\HYDROXYZINE HYDROCHLORIDE
     Indication: PRODUCT USED FOR UNKNOWN INDICATION
     Dosage: AT NIGHT
     Route: 048
  6. CALCIUM CARBONATE. [Concomitant]
     Active Substance: CALCIUM CARBONATE
     Dosage: STILL ON THIS
     Dates: start: 20110728
  7. SIMVASTATIN. [Suspect]
     Active Substance: SIMVASTATIN
     Indication: PRODUCT USED FOR UNKNOWN INDICATION
     Dosage: AT NIGHT
     Route: 048
  8. ALENDRONATE SODIUM/ALENDRONIC ACID [Concomitant]
     Dosage: STILL ON THIS
     Dates: start: 20110728
  9. TIOTROPIUM/TIOTROPIUM BROMIDE [Concomitant]
     Dosage: STILL ON THIS
     Dates: start: 20100630
  10. LEVOTHYROXINE. [Concomitant]
     Active Substance: LEVOTHYROXINE
     Dosage: STILL ON THIS
     Dates: start: 20120419
  11. ACIDEX [Concomitant]
     Active Substance: CALCIUM CARBONATE\SODIUM ALGINATE\SODIUM BICARBONATE
     Dosage: STILL ON THIS
     Dates: start: 20070419
  12. CARBOCISTEINE/CARBOCISTEINE LYSINE/CARBOCISTEINE SODIUM [Concomitant]
     Dosage: STILL ON THIS
     Dates: start: 20110428
  13. SERETIDE [Concomitant]
     Active Substance: FLUTICASONE FUROATE\SALMETEROL XINAFOATE
     Dosage: STILL ON THIS
     Dates: start: 20100630

REACTIONS (3)
  - Vomiting [Recovered/Resolved]
  - Abdominal pain upper [Recovered/Resolved]
  - Drug interaction [Unknown]
